FAERS Safety Report 17713766 (Version 1)
Quarter: 2020Q2

REPORT INFORMATION
  Report Type: Spontaneous
  Country: US (occurrence: US)
  Receive Date: 20200427
  Receipt Date: 20200427
  Transmission Date: 20200714
  Serious: No
  Sender: FDA-Public Use
  Company Number: None

PATIENT
  Age: 52 Year
  Sex: Female
  Weight: 83.25 kg

DRUGS (20)
  1. METFORMIN [Concomitant]
     Active Substance: METFORMIN HYDROCHLORIDE
  2. FISH OIL [Concomitant]
     Active Substance: FISH OIL
  3. LUNESTA [Concomitant]
     Active Substance: ESZOPICLONE
  4. CALCIUM WITH VITAMIN D3 [Concomitant]
     Active Substance: CALCIUM CARBONATE\CHOLECALCIFEROL
  5. PIOGLITAZONE. [Concomitant]
     Active Substance: PIOGLITAZONE
  6. SIMVASTATIN. [Concomitant]
     Active Substance: SIMVASTATIN
  7. MAGNESIUM CITRATE. [Concomitant]
     Active Substance: MAGNESIUM CITRATE
  8. LEXAPRO [Suspect]
     Active Substance: ESCITALOPRAM OXALATE
  9. SUPER B COMPLEX [Concomitant]
     Active Substance: CYANOCOBALAMIN\DEXPANTHENOL\NIACINAMIDE\PYRIDOXINE HYDROCHLORIDE\RIBOFLAVIN 5^-PHOSPHATE SODIUM\THIAMINE HYDROCHLORIDE\VITAMIN B COMPLEX
  10. LUNESTA [Suspect]
     Active Substance: ESZOPICLONE
     Indication: INSOMNIA
     Dosage: ?          QUANTITY:1 CAPSULE(S);?
     Route: 048
  11. ESZOPICLONE. [Suspect]
     Active Substance: ESZOPICLONE
  12. EFFEXOR XR [Suspect]
     Active Substance: VENLAFAXINE HYDROCHLORIDE
  13. LEXAPRO [Concomitant]
     Active Substance: ESCITALOPRAM OXALATE
  14. LITHIUM CARBONATE ER [Concomitant]
     Active Substance: LITHIUM CARBONATE
  15. VITAMIN C [Concomitant]
     Active Substance: ASCORBIC ACID
  16. EFFEXOR XR [Concomitant]
     Active Substance: VENLAFAXINE HYDROCHLORIDE
  17. FENOFIBRATE. [Concomitant]
     Active Substance: FENOFIBRATE
  18. MULTIVITAMIN [Concomitant]
     Active Substance: VITAMINS
  19. GLIMEPIRIDE. [Concomitant]
     Active Substance: GLIMEPIRIDE
  20. LITHIUM CARBONATE ER [Concomitant]
     Active Substance: LITHIUM CARBONATE

REACTIONS (4)
  - Insomnia [None]
  - Suspected product quality issue [None]
  - Therapeutic product effect decreased [None]
  - Amnesia [None]

NARRATIVE: CASE EVENT DATE: 20190827
